FAERS Safety Report 15016734 (Version 1)
Quarter: 2018Q2

REPORT INFORMATION
  Report Type: Spontaneous
  Country: US (occurrence: US)
  Receive Date: 20180615
  Receipt Date: 20180615
  Transmission Date: 20180711
  Serious: Yes (Other)
  Sender: FDA-Public Use
  Company Number: US-ROCHE-2140535

PATIENT
  Age: 59 Year
  Sex: Female
  Weight: 59.02 kg

DRUGS (6)
  1. AVASTIN [Suspect]
     Active Substance: BEVACIZUMAB
     Dosage: ONGOING: YES
     Route: 065
     Dates: start: 20180419
  2. 5-FU [Concomitant]
     Active Substance: FLUOROURACIL
     Dosage: ONGOING: YES
     Route: 065
     Dates: start: 201803
  3. 5-FU [Concomitant]
     Active Substance: FLUOROURACIL
     Dosage: ONGOING: NO
     Route: 065
     Dates: start: 201310, end: 201711
  4. AVASTIN [Suspect]
     Active Substance: BEVACIZUMAB
     Indication: COLORECTAL CANCER
     Dosage: ONGOING: NO
     Route: 065
     Dates: start: 2014, end: 201411
  5. AVASTIN [Suspect]
     Active Substance: BEVACIZUMAB
     Indication: METASTASES TO LIVER
     Dosage: ONGOING: NO
     Route: 065
     Dates: start: 201504, end: 201607
  6. AVASTIN [Suspect]
     Active Substance: BEVACIZUMAB
     Dosage: ONGOING: NO
     Route: 065
     Dates: start: 201609, end: 201711

REACTIONS (1)
  - Hepatic neoplasm [Not Recovered/Not Resolved]

NARRATIVE: CASE EVENT DATE: 20180613
